FAERS Safety Report 9106327 (Version 1)
Quarter: 2013Q1

REPORT INFORMATION
  Report Type: Spontaneous
  Country: FR (occurrence: FR)
  Receive Date: 20130220
  Receipt Date: 20130220
  Transmission Date: 20140127
  Serious: Yes (Hospitalization, Other)
  Sender: FDA-Public Use
  Company Number: FR-ELI_LILLY_AND_COMPANY-FR201302002647

PATIENT
  Age: 63 Year
  Sex: Male

DRUGS (3)
  1. ALIMTA [Suspect]
     Indication: LUNG ADENOCARCINOMA
     Dosage: 575 MG, UNK
     Route: 042
     Dates: end: 20120830
  2. CARBOPLATIN [Concomitant]
     Indication: LUNG ADENOCARCINOMA
     Dosage: 637.5 MG, UNK
     Route: 042
     Dates: start: 20120830
  3. LOVENOX [Concomitant]
     Route: 058

REACTIONS (6)
  - Bladder neoplasm [Unknown]
  - Dyskinesia [Unknown]
  - Pancytopenia [Recovered/Resolved]
  - Nausea [Unknown]
  - Vomiting [Unknown]
  - Off label use [Unknown]
